FAERS Safety Report 5939889-3 (Version None)
Quarter: 2008Q4

REPORT INFORMATION
  Report Type: 
  Country: None (occurrence: None)
  Receive Date: 20081104
  Receipt Date: 20081030
  Transmission Date: 20090506
  Serious: Yes (Hospitalization)
  Sender: FDA-Public Use
  Company Number: US-BRISTOL-MYERS SQUIBB COMPANY-14375885

PATIENT
  Age: 41 Year
  Sex: Female
  Weight: 57 kg

DRUGS (8)
  1. PACLITAXEL [Suspect]
     Indication: OVARIAN CANCER
     Dosage: THERAPY STARTED ON 24-APR-2003 .
     Route: 042
     Dates: start: 20030610, end: 20030610
  2. CARBOPLATIN [Suspect]
     Indication: OVARIAN CANCER
     Dosage: THERAPY STARTED ON 24-APR-2003
     Route: 042
     Dates: start: 20030610, end: 20030610
  3. FIBERCON [Concomitant]
  4. ATIVAN [Concomitant]
  5. PAXIL [Concomitant]
  6. KYTRIL [Concomitant]
  7. BENADRYL [Concomitant]
  8. DECADRON [Concomitant]

REACTIONS (2)
  - ABDOMINAL PAIN [None]
  - INTESTINAL OBSTRUCTION [None]
